FAERS Safety Report 6260814-2 (Version None)
Quarter: 2009Q3

REPORT INFORMATION
  Report Type: 
  Country: None (occurrence: None)
  Receive Date: 20090707
  Receipt Date: 20090626
  Transmission Date: 20100115
  Serious: Yes (Hospitalization)
  Sender: FDA-Public Use
  Company Number: 2009AP002607

PATIENT
  Age: 40 Year
  Sex: Female

DRUGS (10)
  1. CARBAMAZEPINE [Suspect]
     Dosage: 150 MG;PO;QD;  300 MG; PO;QD; 450 MG; PO;QD; 600 MG; PO;QD
     Route: 048
     Dates: start: 20090216, end: 20090223
  2. CARBAMAZEPINE [Suspect]
     Dosage: 150 MG;PO;QD;  300 MG; PO;QD; 450 MG; PO;QD; 600 MG; PO;QD
     Route: 048
     Dates: start: 20090224, end: 20090226
  3. CARBAMAZEPINE [Suspect]
     Dosage: 150 MG;PO;QD;  300 MG; PO;QD; 450 MG; PO;QD; 600 MG; PO;QD
     Route: 048
     Dates: start: 20090227, end: 20090228
  4. CARBAMAZEPINE [Suspect]
     Dosage: 150 MG;PO;QD;  300 MG; PO;QD; 450 MG; PO;QD; 600 MG; PO;QD
     Route: 048
     Dates: start: 20090301, end: 20090303
  5. CARBAMAZEPINE [Suspect]
     Dosage: 150 MG;PO;QD;  300 MG; PO;QD; 450 MG; PO;QD; 600 MG; PO;QD
     Route: 048
     Dates: start: 20090213
  6. CARBAMAZEPINE [Suspect]
     Dosage: 150 MG;PO;QD;  300 MG; PO;QD; 450 MG; PO;QD; 600 MG; PO;QD
     Route: 048
     Dates: start: 20090214
  7. CARBAMAZEPINE [Suspect]
     Dosage: 150 MG;PO;QD;  300 MG; PO;QD; 450 MG; PO;QD; 600 MG; PO;QD
     Route: 048
     Dates: start: 20090215
  8. TRAZODONE HCL [Suspect]
     Dosage: 25 MG; QD;  PO
     Route: 048
     Dates: start: 20090301, end: 20090304
  9. VENLAFAXINE HCL [Concomitant]
  10. OMEPRAZOLE [Concomitant]

REACTIONS (1)
  - DERMATITIS ALLERGIC [None]
